FAERS Safety Report 9222541 (Version 2)
Quarter: 2013Q2

REPORT INFORMATION
  Report Type: Report from Study
  Country: DE (occurrence: DE)
  Receive Date: 20130410
  Receipt Date: 20130503
  Transmission Date: 20140414
  Serious: Yes (Death, Other)
  Sender: FDA-Public Use
  Company Number: DE-ROCHE-1209015

PATIENT
  Sex: 0

DRUGS (1)
  1. ALTEPLASE [Suspect]
     Indication: PRECEREBRAL ARTERY OCCLUSION
     Dosage: DOSE: 10-20 MG / HR
     Route: 013

REACTIONS (5)
  - Death [Fatal]
  - Haemorrhage intracranial [Fatal]
  - Therapeutic response decreased [Unknown]
  - Haemorrhagic transformation stroke [Unknown]
  - Drug effect decreased [Unknown]
